FAERS Safety Report 6247245-6 (Version None)
Quarter: 2009Q2

REPORT INFORMATION
  Report Type: 
  Country: None (occurrence: None)
  Receive Date: 20090624
  Receipt Date: 20090624
  Transmission Date: 20091009
  Serious: Yes (Hospitalization)
  Sender: FDA-Public Use
  Company Number: None

PATIENT
  Age: 61 Year
  Sex: Male
  Weight: 115 kg

DRUGS (10)
  1. DAPTOMYCIN [Suspect]
     Indication: INFECTION
     Dosage: 700-920MG IV DAILY
     Route: 042
     Dates: start: 20090329, end: 20090406
  2. ALLOPURINOL [Concomitant]
  3. CA ACETATE [Concomitant]
  4. LACTULOSE [Concomitant]
  5. LANSOPRAZOLE [Concomitant]
  6. LEVOTHYROXINE SODIUM [Concomitant]
  7. LORAZEPAM [Concomitant]
  8. OXYCODONE [Concomitant]
  9. PREDNISONE [Concomitant]
  10. THALIDOMIDE [Concomitant]

REACTIONS (1)
  - RASH [None]
